FAERS Safety Report 14901148 (Version 1)
Quarter: 2018Q2

REPORT INFORMATION
  Report Type: Spontaneous
  Country: NL (occurrence: NL)
  Receive Date: 20180516
  Receipt Date: 20180516
  Transmission Date: 20180711
  Serious: Yes (Life-Threatening)
  Sender: FDA-Public Use
  Company Number: NL-ASTRAZENECA-2018SE61326

PATIENT
  Age: 73 Year
  Sex: Female
  Weight: 70 kg

DRUGS (5)
  1. ACETYLSALICYLIC ACID [Concomitant]
     Active Substance: ASPIRIN
  2. ATORVASTATIN [Concomitant]
     Active Substance: ATORVASTATIN
  3. FORXIGA [Suspect]
     Active Substance: DAPAGLIFLOZIN
     Indication: TYPE 2 DIABETES MELLITUS
     Route: 048
     Dates: start: 20180129, end: 20180421
  4. PERSANTIN [Concomitant]
     Active Substance: DIPYRIDAMOLE
  5. METFORMIN [Concomitant]
     Active Substance: METFORMIN HYDROCHLORIDE

REACTIONS (1)
  - Diabetic ketoacidosis [Recovering/Resolving]

NARRATIVE: CASE EVENT DATE: 20180416
